FAERS Safety Report 19351648 (Version 1)
Quarter: 2021Q2

REPORT INFORMATION
  Report Type: Report from Study
  Country: US (occurrence: US)
  Receive Date: 20210531
  Receipt Date: 20210531
  Transmission Date: 20210717
  Serious: Yes (Other)
  Sender: FDA-Public Use
  Company Number: US-BIOVITRUM-2021US4798

PATIENT
  Age: 12 Year
  Sex: Female

DRUGS (2)
  1. KINERET [Suspect]
     Active Substance: ANAKINRA
     Indication: PERICARDIAL DISEASE
     Route: 058
     Dates: start: 201810
  2. PFIZER?BIONTECH COVID?19 VACCINE [Suspect]
     Active Substance: TOZINAMERAN

REACTIONS (2)
  - Off label use [Unknown]
  - Pneumonia [Unknown]

NARRATIVE: CASE EVENT DATE: 201810
